FAERS Safety Report 6496042-5 (Version None)
Quarter: 2009Q4

REPORT INFORMATION
  Report Type: 
  Country: None (occurrence: None)
  Receive Date: 20091214
  Receipt Date: 20090921
  Transmission Date: 20100525
  Serious: No
  Sender: FDA-Public Use
  Company Number: US-BRISTOL-MYERS SQUIBB COMPANY-14786503

PATIENT
  Sex: Female
  Weight: 83 kg

DRUGS (5)
  1. ABILIFY [Suspect]
     Indication: DEPRESSION
  2. CYMBALTA [Concomitant]
  3. XELODA [Concomitant]
  4. LISINOPRIL [Concomitant]
  5. COUMADIN [Concomitant]

REACTIONS (2)
  - OBSESSIVE-COMPULSIVE DISORDER [None]
  - WEIGHT INCREASED [None]
